FAERS Safety Report 5385532-4 (Version None)
Quarter: 2007Q3

REPORT INFORMATION
  Report Type: 
  Country: None (occurrence: None)
  Receive Date: 20070712
  Receipt Date: 20070709
  Transmission Date: 20080115
  Serious: Yes (Hospitalization)
  Sender: FDA-Public Use
  Company Number: A0662499A

PATIENT
  Sex: Female

DRUGS (5)
  1. AVANDIA [Suspect]
     Route: 048
  2. GLYCOSIDE [Concomitant]
  3. METFORMIN HCL [Concomitant]
  4. VERAPAMIL [Concomitant]
  5. ASPIRIN [Concomitant]

REACTIONS (2)
  - MYOCARDIAL INFARCTION [None]
  - OEDEMA [None]
